FAERS Safety Report 7125671-0 (Version None)
Quarter: 2010Q4

REPORT INFORMATION
  Report Type: 
  Country: None (occurrence: None)
  Receive Date: 20101129
  Receipt Date: 20101117
  Transmission Date: 20110411
  Serious: Yes (Hospitalization, Disabling)
  Sender: FDA-Public Use
  Company Number: A0798504A

PATIENT
  Age: 70 Year
  Sex: Female

DRUGS (1)
  1. AVANDIA [Suspect]
     Dosage: 4MG PER DAY
     Route: 048
     Dates: start: 20020211, end: 20070609

REACTIONS (12)
  - ARTERIOSCLEROSIS [None]
  - CEREBRAL ARTERY STENOSIS [None]
  - CEREBRAL CALCIFICATION [None]
  - DYSARTHRIA [None]
  - HEMIPARESIS [None]
  - HYPERLIPIDAEMIA [None]
  - ISCHAEMIA [None]
  - NERVOUS SYSTEM DISORDER [None]
  - SPEECH DISORDER [None]
  - TRANSIENT ISCHAEMIC ATTACK [None]
  - VASCULAR CALCIFICATION [None]
  - WALKING AID USER [None]
